FAERS Safety Report 10363517 (Version 3)
Quarter: 2015Q2

REPORT INFORMATION
  Report Type: Spontaneous
  Country: US (occurrence: US)
  Receive Date: 20140805
  Receipt Date: 20150520
  Transmission Date: 20150821
  Serious: Yes (Hospitalization, Disabling, Congenital Anomaly, Other)
  Sender: FDA-Public Use
  Company Number: US-PFIZER INC-2014215115

PATIENT
  Age: 12 Month
  Sex: Female

DRUGS (1)
  1. ZOLOFT [Suspect]
     Active Substance: SERTRALINE HYDROCHLORIDE
     Indication: DEPRESSION
     Dosage: UNK
     Route: 064
     Dates: start: 1993, end: 1994

REACTIONS (11)
  - Congenital scoliosis [Unknown]
  - Maternal exposure during pregnancy [Not Recovered/Not Resolved]
  - Cardiac fibrillation [Unknown]
  - Asthma [Unknown]
  - Syndactyly [Unknown]
  - Sleep apnoea syndrome [Unknown]
  - Congenital Horner^s syndrome [Unknown]
  - Sinus disorder [Unknown]
  - Congenital mitral valve stenosis [Not Recovered/Not Resolved]
  - Ventricular septal defect [Not Recovered/Not Resolved]
  - Cardiac disorder [Unknown]

NARRATIVE: CASE EVENT DATE: 199512
